FAERS Safety Report 11864979 (Version 1)
Quarter: 2015Q4

REPORT INFORMATION
  Report Type: Spontaneous
  Country: CA (occurrence: CA)
  Receive Date: 20151223
  Receipt Date: 20151223
  Transmission Date: 20160305
  Serious: Yes (Life-Threatening, Hospitalization)
  Sender: FDA-Public Use
  Company Number: CA-ASTRAZENECA-2015SF27344

PATIENT
  Age: 72 Year
  Sex: Male
  Weight: 76 kg

DRUGS (10)
  1. COLCHICINE. [Concomitant]
     Active Substance: COLCHICINE
  2. ACETYLSALICYLIC ACID [Concomitant]
     Active Substance: ASPIRIN
  3. VORICONAZOLE. [Suspect]
     Active Substance: VORICONAZOLE
     Indication: LOWER RESPIRATORY TRACT INFECTION FUNGAL
     Route: 048
  4. DEXTROSE. [Concomitant]
     Active Substance: DEXTROSE
     Route: 042
  5. NOVORAPID [Concomitant]
     Active Substance: INSULIN ASPART
  6. PANTOPRAZOLE [Concomitant]
     Active Substance: PANTOPRAZOLE SODIUM
  7. QUETIAPINE [Concomitant]
     Active Substance: QUETIAPINE
  8. BRILINTA [Suspect]
     Active Substance: TICAGRELOR
     Indication: ARTERIOSCLEROSIS
     Route: 048
  9. BRILINTA [Suspect]
     Active Substance: TICAGRELOR
     Indication: ACUTE MYOCARDIAL INFARCTION
     Route: 048
  10. HEPARIN SODIUM. [Concomitant]
     Active Substance: HEPARIN SODIUM
     Route: 042

REACTIONS (2)
  - Atrioventricular block complete [Unknown]
  - Sinus arrest [Unknown]
